FAERS Safety Report 11644282 (Version 1)
Quarter: 2015Q4

REPORT INFORMATION
  Report Type: Spontaneous
  Country: US (occurrence: None)
  Receive Date: 20151019
  Receipt Date: 20151019
  Transmission Date: 20160304
  Serious: No
  Sender: FDA-Public Use
  Company Number: None

PATIENT
  Age: 47 Year
  Weight: 72.58 kg

DRUGS (3)
  1. GABAPENTIN 100 MG [Suspect]
     Active Substance: GABAPENTIN
     Indication: PAIN
     Dosage: 300 MG 3X DAILY  THREE TIMES DAILY TAKEN BY MOUTH
     Route: 048
     Dates: start: 20150501, end: 20150615
  2. TIZANADINE [Concomitant]
  3. GABAPENTIN 100 MG [Suspect]
     Active Substance: GABAPENTIN
     Indication: INTERVERTEBRAL DISC PROTRUSION
     Dosage: 300 MG 3X DAILY  THREE TIMES DAILY TAKEN BY MOUTH
     Route: 048
     Dates: start: 20150501, end: 20150615

REACTIONS (1)
  - Psoriasis [None]

NARRATIVE: CASE EVENT DATE: 20150501
